FAERS Safety Report 8615358-7 (Version None)
Quarter: 2012Q3

REPORT INFORMATION
  Report Type: 
  Country: None (occurrence: None)
  Receive Date: 20120815
  Receipt Date: 20120815
  Transmission Date: 20120928
  Serious: Yes (Hospitalization)
  Sender: FDA-Public Use
  Company Number: None

PATIENT
  Age: 78 Year
  Sex: Male
  Weight: 56.6996 kg

DRUGS (17)
  1. NPH INSULIN [Concomitant]
  2. ESOMEPRAZOLE SODIUM [Concomitant]
  3. COLLAGENASE TOPICALLY [Concomitant]
  4. VANCOMYCIN [Suspect]
     Indication: CLOSTRIDIUM DIFFICILE COLITIS
     Dosage: 1250MG QID PO
     Route: 048
     Dates: start: 20120405, end: 20120409
  5. METOPROLOL TARTRATE [Concomitant]
  6. HEPARIN [Concomitant]
  7. VANCOMYCIN [Suspect]
     Dosage: 750MG Q12H IV
     Route: 042
     Dates: start: 20120329, end: 20120409
  8. CITALOPRAM HYDROBROMIDE [Concomitant]
  9. SIMVASTATIN [Concomitant]
  10. D5NS IVF [Concomitant]
  11. HYDROMORPHONE HCL [Concomitant]
  12. INSULIN ASPART SLIDING SCALE [Concomitant]
  13. SINEMET [Concomitant]
  14. AMLODIPINE [Concomitant]
  15. SENNA [Concomitant]
  16. FERROUS SULFATE TAB [Concomitant]
  17. DOCUSATE [Concomitant]

REACTIONS (2)
  - NEPHROPATHY TOXIC [None]
  - BLOOD CREATININE INCREASED [None]
